FAERS Safety Report 10409925 (Version 2)
Quarter: 2014Q4

REPORT INFORMATION
  Report Type: Spontaneous
  Country: US (occurrence: None)
  Receive Date: 20140604
  Receipt Date: 20141010
  Transmission Date: 20150528
  Serious: No
  Sender: FDA-Public Use
  Company Number: 163-POMAL-14041216

PATIENT
  Age: 78 Year
  Sex: Male
  Weight: 107.96 kg

DRUGS (15)
  1. CALCIUM(CALCIUM) [Concomitant]
  2. DIGESTIVE ADVANTAGE(BACILLUS COAGULANS) [Concomitant]
  3. TYLENOL(PARACETAMOL) [Concomitant]
  4. MIRALAX(MACROGOL) [Concomitant]
  5. POMALYST [Suspect]
     Active Substance: POMALIDOMIDE
     Indication: PLASMA CELL MYELOMA
     Route: 048
     Dates: start: 20140113
  6. LIBRAX(LIBRAX) [Concomitant]
  7. AVODART(DUTASTERIDE) [Concomitant]
  8. FLOMAX(TAMSULOSIN HYDROCHLORIDE) [Concomitant]
  9. PRILOSEC(OMEPRAZOLE) [Concomitant]
  10. ALPHA LIPOIC ACID(THIOCTIC ACID) [Concomitant]
  11. NEUPOGEN(FILGRASTIM) [Concomitant]
  12. PREDNISONE(PREDNISONE)(PREDNISONE) [Concomitant]
     Active Substance: PREDNISONE
  13. ZOMETA [Concomitant]
     Active Substance: ZOLEDRONIC ACID
  14. FIBERSURE(PLANTAGO OVATA FIBRE) [Concomitant]
  15. COUMADIN [Concomitant]
     Active Substance: WARFARIN SODIUM

REACTIONS (8)
  - Plasma cell myeloma [None]
  - Chest pain [None]
  - Diarrhoea [None]
  - Back pain [None]
  - Neuropathy peripheral [None]
  - Irritable bowel syndrome [None]
  - Arthritis [None]
  - Drug ineffective [None]

NARRATIVE: CASE EVENT DATE: 2014
